FAERS Safety Report 12429855 (Version 2)
Quarter: 2016Q2

REPORT INFORMATION
  Report Type: Spontaneous
  Country: US (occurrence: US)
  Receive Date: 20160602
  Receipt Date: 20160616
  Transmission Date: 20160815
  Serious: Yes (Other)
  Sender: FDA-Public Use
  Company Number: US-PERRIGO-16US016512

PATIENT
  Age: 54 Year
  Sex: Female
  Weight: 86.17 kg

DRUGS (8)
  1. LEVOTHYROXINE. [Concomitant]
     Active Substance: LEVOTHYROXINE
     Indication: HYPOTHYROIDISM
     Dosage: UNK
     Route: 048
  2. ARIMIDEX [Concomitant]
     Active Substance: ANASTROZOLE
     Indication: CHEMOTHERAPY
     Dosage: UNK
     Route: 048
  3. PROLIA [Concomitant]
     Active Substance: DENOSUMAB
     Indication: OSTEOPOROSIS
     Dosage: UNK
     Route: 058
  4. CALCIUM [Concomitant]
     Active Substance: CALCIUM
     Indication: SUPPLEMENTATION THERAPY
     Dosage: UNK
     Route: 048
  5. BACITRACIN ZINC 500 U/G 536 [Suspect]
     Active Substance: BACITRACIN ZINC
     Indication: PROPHYLAXIS
     Dosage: NIPPLE SHIELD FULL, QD, BOTH NIPPLES
     Route: 061
     Dates: start: 20160414, end: 20160522
  6. BABY ASPIRIN [Concomitant]
     Active Substance: ASPIRIN
     Indication: SUPPLEMENTATION THERAPY
     Dosage: 81 MG, UNKNOWN
     Route: 048
  7. BACITRACIN ZINC 500 U/G 536 [Suspect]
     Active Substance: BACITRACIN ZINC
     Dosage: SMALL AMOUNT, QD, INCISION UNDER BREAST
     Route: 061
     Dates: start: 20160414, end: 20160522
  8. MULTIVITAMIN                       /07504101/ [Concomitant]
     Active Substance: VITAMINS
     Indication: SUPPLEMENTATION THERAPY
     Dosage: UNK
     Route: 048

REACTIONS (6)
  - Drug administration error [Recovered/Resolved]
  - Incorrect drug administration duration [Recovered/Resolved]
  - Miliaria [Recovering/Resolving]
  - Incorrect dose administered [Recovered/Resolved]
  - Breast cellulitis [Recovering/Resolving]
  - Condition aggravated [Recovered/Resolved]

NARRATIVE: CASE EVENT DATE: 20160414
